FAERS Safety Report 8408140-7 (Version None)
Quarter: 2012Q2

REPORT INFORMATION
  Report Type: 
  Country: None (occurrence: None)
  Receive Date: 20120604
  Receipt Date: 20120530
  Transmission Date: 20120825
  Serious: Yes (Other)
  Sender: FDA-Public Use
  Company Number: US-PFIZER INC-2012095562

PATIENT
  Sex: Female
  Weight: 76 kg

DRUGS (3)
  1. ADDERALL 5 [Concomitant]
     Indication: ATTENTION DEFICIT/HYPERACTIVITY DISORDER
     Dosage: UNK
  2. CHANTIX [Suspect]
     Dosage: 1 MG, 2X/DAY
     Route: 048
     Dates: start: 20120101, end: 20120401
  3. CHANTIX [Suspect]
     Indication: SMOKING CESSATION THERAPY
     Dosage: 0.5 MG, 1X/DAY
     Route: 048
     Dates: start: 20120208, end: 20120101

REACTIONS (10)
  - MYALGIA [None]
  - IRRITABILITY [None]
  - DISORIENTATION [None]
  - MEMORY IMPAIRMENT [None]
  - NEUROPSYCHIATRIC SYNDROME [None]
  - MANIA [None]
  - AMNESIA [None]
  - SUPRAVENTRICULAR TACHYCARDIA [None]
  - AGGRESSION [None]
  - HALLUCINATION [None]
